FAERS Safety Report 6638553-5 (Version None)
Quarter: 2010Q1

REPORT INFORMATION
  Report Type: 
  Country: None (occurrence: None)
  Receive Date: 20100317
  Receipt Date: 20100312
  Transmission Date: 20100710
  Serious: Yes (Other)
  Sender: FDA-Public Use
  Company Number: US-BRISTOL-MYERS SQUIBB COMPANY-15014988

PATIENT
  Age: 77 Year
  Sex: Female

DRUGS (1)
  1. ORENCIA [Suspect]
     Dates: start: 20070601, end: 20071201

REACTIONS (3)
  - CHRONIC OBSTRUCTIVE PULMONARY DISEASE [None]
  - EMPHYSEMA [None]
  - LUNG NEOPLASM MALIGNANT [None]
